FAERS Safety Report 14319078 (Version 1)
Quarter: 2017Q4

REPORT INFORMATION
  Report Type: Spontaneous
  Country: GB (occurrence: GB)
  Receive Date: 20171222
  Receipt Date: 20171222
  Transmission Date: 20180321
  Serious: Yes (Disabling, Other)
  Sender: FDA-Public Use
  Company Number: GB-MYLANLABS-2017M1080408

PATIENT
  Age: 63 Year
  Sex: Male
  Weight: 128 kg

DRUGS (37)
  1. MAGNESIUM ACETATE [Concomitant]
     Active Substance: MAGNESIUM ACETATE
  2. GENTAMICIN SULFATE. [Concomitant]
     Active Substance: GENTAMICIN SULFATE
  3. TAZOCIN [Concomitant]
     Active Substance: PIPERACILLIN SODIUM\TAZOBACTAM SODIUM
  4. OXYCODONE HYDROCHLORIDE. [Concomitant]
     Active Substance: OXYCODONE HYDROCHLORIDE
  5. POTASSIUM CHLORIDE. [Concomitant]
     Active Substance: POTASSIUM CHLORIDE
  6. CANDESARTAN CILEXETIL. [Concomitant]
     Active Substance: CANDESARTAN CILEXETIL
  7. ZOPICLONE [Concomitant]
     Active Substance: ZOPICLONE
  8. DIAZEPAM. [Concomitant]
     Active Substance: DIAZEPAM
  9. GAVISCON ADVANCE [Concomitant]
     Active Substance: POTASSIUM BICARBONATE\SODIUM ALGINATE
  10. CORSODYL [Concomitant]
     Active Substance: CHLORHEXIDINE GLUCONATE
  11. RANITIDINE HYDROCHLORIDE. [Concomitant]
     Active Substance: RANITIDINE HYDROCHLORIDE
  12. PARACETAMOL [Concomitant]
     Active Substance: ACETAMINOPHEN
  13. LANSOPRAZOLE. [Concomitant]
     Active Substance: LANSOPRAZOLE
  14. ONDANSETRON HYDROCHLORIDE. [Concomitant]
     Active Substance: ONDANSETRON HYDROCHLORIDE
  15. ENOXAPARIN SODIUM. [Concomitant]
     Active Substance: ENOXAPARIN SODIUM
  16. CASSIA [Concomitant]
  17. SALBUTAMOL [Concomitant]
     Active Substance: ALBUTEROL
  18. PHOSPHATE [Concomitant]
     Active Substance: UNSPECIFIED INGREDIENT
  19. SANDO K [Concomitant]
  20. CASPOFUNGIN [Suspect]
     Active Substance: CASPOFUNGIN
     Indication: ENDOCARDITIS CANDIDA
     Dosage: IMMEDIATE (STAT).
     Route: 042
     Dates: start: 20171113, end: 20171113
  21. CASPOFUNGIN [Suspect]
     Active Substance: CASPOFUNGIN
     Dosage: UNK
     Route: 042
     Dates: start: 201701, end: 201703
  22. VORICONAZOLE. [Suspect]
     Active Substance: VORICONAZOLE
     Indication: ENDOCARDITIS CANDIDA
     Route: 042
     Dates: start: 20171031, end: 20171106
  23. CEFUROXIME. [Concomitant]
     Active Substance: CEFUROXIME
  24. AMOXICILLIN. [Concomitant]
     Active Substance: AMOXICILLIN
     Indication: ENDOCARDITIS CANDIDA
  25. DOCUSATE [Concomitant]
     Active Substance: DOCUSATE
  26. GLYCERYL TRINITRATE [Concomitant]
     Active Substance: NITROGLYCERIN
  27. FUROSEMIDE. [Concomitant]
     Active Substance: FUROSEMIDE
  28. ALFACALCIDOL [Concomitant]
     Active Substance: ALFACALCIDOL
  29. GELOPLASMA [Concomitant]
  30. EPLERENONE. [Concomitant]
     Active Substance: EPLERENONE
  31. INSULIN GLULISINE [Concomitant]
     Active Substance: INSULIN GLULISINE
  32. LACTULOSE. [Concomitant]
     Active Substance: LACTULOSE
  33. FORTISIP [Concomitant]
     Active Substance: CARBOHYDRATES\FATTY ACIDS\MINERALS\PROTEIN\VITAMINS
  34. ALLOPURINOL. [Concomitant]
     Active Substance: ALLOPURINOL
  35. DIHYDROCODEINE TARTRATE [Concomitant]
     Active Substance: DIHYDROCODEINE BITARTRATE
  36. ACETYLSALICYLIC ACID [Concomitant]
     Active Substance: ASPIRIN
  37. GLYCEROL [Concomitant]
     Active Substance: GLYCERIN

REACTIONS (2)
  - Hypoacusis [Unknown]
  - Blindness [Unknown]
